FAERS Safety Report 5440559-9 (Version None)
Quarter: 2007Q3

REPORT INFORMATION
  Report Type: 
  Country: None (occurrence: None)
  Receive Date: 20070831
  Receipt Date: 20070824
  Transmission Date: 20080115
  Serious: Yes (Hospitalization, Other)
  Sender: FDA-Public Use
  Company Number: DE-ABBOTT-07P-062-0414982-00

PATIENT
  Sex: Male

DRUGS (4)
  1. HUMIRA [Suspect]
     Indication: ANKYLOSING SPONDYLITIS
     Route: 058
     Dates: start: 20070407
  2. TRAMADOL HCL [Concomitant]
     Indication: ANKYLOSING SPONDYLITIS
     Route: 048
  3. PREDNISOLONE [Concomitant]
     Indication: ANKYLOSING SPONDYLITIS
     Route: 048
     Dates: start: 20070101
  4. ARTHROTEC [Concomitant]
     Indication: ANKYLOSING SPONDYLITIS

REACTIONS (6)
  - METASTASES TO LIVER [None]
  - METASTASES TO LUNG [None]
  - METASTASES TO LYMPH NODES [None]
  - METASTASES TO STOMACH [None]
  - METASTASIS [None]
  - PANCREATIC CARCINOMA [None]
